FAERS Safety Report 26139941 (Version 1)
Quarter: 2025Q4

REPORT INFORMATION
  Report Type: Spontaneous
  Country: JP (occurrence: JP)
  Receive Date: 20251210
  Receipt Date: 20251210
  Transmission Date: 20260117
  Serious: Yes (Hospitalization)
  Sender: PFIZER
  Company Number: JP-PFIZER INC-PV202500142949

PATIENT
  Age: 56 Year
  Sex: Female
  Weight: 77.5 kg

DRUGS (21)
  1. AROMASIN [Suspect]
     Active Substance: EXEMESTANE
     Indication: Breast cancer
     Dosage: 1 DF, 1X/DAY, AFTER BREAKFAST, 23 DAYS
     Route: 048
     Dates: start: 20150406
  2. AMLODIPINE [Concomitant]
     Active Substance: AMLODIPINE BESYLATE
     Dosage: 1 DF
  3. AZOSEMIDE [Concomitant]
     Active Substance: AZOSEMIDE
     Dosage: 1 DF
  4. MAGNESIUM OXIDE [Concomitant]
     Active Substance: MAGNESIUM OXIDE
     Dosage: 1 DF, 3X/DAY, AFTER BREAKFAST, LUNCH, AND DINNER, 23 DAYS
     Route: 048
  5. LANSOPRAZOLE [Concomitant]
     Active Substance: LANSOPRAZOLE
     Dosage: 1 DF, 1X/DAY, BEFORE GOING TO BED, 23 DAYS
     Route: 048
  6. LINZESS [Concomitant]
     Active Substance: LINACLOTIDE
     Dosage: 2 DF, 1X/DAY, BEFORE DINNER, 29 DAYS
     Route: 048
  7. BERIZYM [ENZYMES NOS] [Concomitant]
     Dosage: 0.67 G
  8. BIOFERMIN [BIFIDOBACTERIUM BIFIDUM] [Concomitant]
     Dosage: 1 G, 3X/DAY, AFTER BREAKFAST, LUNCH, AND DINNER, 25 DAYS
     Route: 048
  9. HERBALS [Concomitant]
     Active Substance: HERBALS
     Dosage: 2.5 G, 3X/DAY, BEFORE BREAKFAST, LUNCH, AND DINNER, 11 DAYS
     Route: 048
  10. SODIUM PICOSULFATE [Concomitant]
     Active Substance: SODIUM PICOSULFATE
     Dosage: BEFORE GOING TO BED, 20 TO 30 DROPS
     Route: 048
  11. ARTIFICIAL TEAR MYTEAR [Concomitant]
     Dosage: EYE DROPS TO BOTH EYES (LEFT EYE AND RIGHT EYE), 4X/DAY
     Route: 047
  12. DIQUAFOSOL NA [Concomitant]
     Dosage: SIX TIMES DAILY USE OF EYE DROPS TO BOTH EYES (LEFT EYE AND RIGHT EYE)
     Route: 047
  13. TRAZODONE HYDROCHLORIDE [Concomitant]
     Active Substance: TRAZODONE HYDROCHLORIDE
     Dosage: 3 DF, 1X/DAY, BEFORE GOING TO BED, 11 DAYS
     Route: 048
  14. DULOXETINE [Concomitant]
     Active Substance: DULOXETINE
     Dosage: 3 DF, 1X/DAY, AFTER BREAKFAST, 11 DAYS
     Route: 048
  15. CHLORPROMAZINE HYDROCHLORIDE [Concomitant]
     Active Substance: CHLORPROMAZINE HYDROCHLORIDE
     Dosage: 1 DF, 4X/DAY, AFTER BREAKFAST, LUNCH, DINNER AND BEFORE GOING TO BED, 11 DAYS
     Route: 048
  16. ALPRAZOLAM [Concomitant]
     Active Substance: ALPRAZOLAM
     Dosage: 1 DF, 2X/DAY, AFTER BREAKFAST AND LUNCH, 11 DAYS
     Route: 048
  17. ALPRAZOLAM [Concomitant]
     Active Substance: ALPRAZOLAM
     Dosage: 1 DF
  18. PAROXETINE [Concomitant]
     Active Substance: PAROXETINE
     Dosage: 1 DF
  19. AKINETON [Concomitant]
     Active Substance: BIPERIDEN HYDROCHLORIDE
     Dosage: 1 DF, 1X/DAY, AFTER DINNER, 11 DAYS
     Route: 048
  20. MIROGABALIN BESYLATE [Concomitant]
     Active Substance: MIROGABALIN BESYLATE
     Dosage: 1 DF, 1X/DAY, AFTER BREAKFAST, 11 DAYS
     Route: 048
  21. MIRABEGRON [Concomitant]
     Active Substance: MIRABEGRON
     Dosage: 1 DF, 1X/DAY, AFTER DINNER, 14 DAYS
     Route: 048

REACTIONS (2)
  - Pulmonary artery thrombosis [Recovering/Resolving]
  - Deep vein thrombosis [Recovering/Resolving]

NARRATIVE: CASE EVENT DATE: 20251125
